FAERS Safety Report 4311391-4 (Version None)
Quarter: 2004Q1

REPORT INFORMATION
  Report Type: 
  Country: None (occurrence: None)
  Receive Date: 20040302
  Receipt Date: 20030310
  Transmission Date: 20041129
  Serious: Yes (Life-Threatening, Hospitalization)
  Sender: FDA-Public Use
  Company Number: BDI-004927

PATIENT
  Sex: Male

DRUGS (3)
  1. ISOVUE-370 [Suspect]
     Indication: ABDOMINAL PAIN
     Dosage: IV
     Route: 042
     Dates: start: 20030211, end: 20030211
  2. ISOVUE-370 [Suspect]
     Indication: COMPUTERISED TOMOGRAM ABDOMEN
     Dosage: IV
     Route: 042
     Dates: start: 20030211, end: 20030211
  3. ISOVUE-370 [Suspect]
     Indication: FLANK PAIN
     Dosage: IV
     Route: 042
     Dates: start: 20030211, end: 20030211

REACTIONS (1)
  - ANAPHYLACTIC SHOCK [None]
